FAERS Safety Report 20722282 (Version 1)
Quarter: 2022Q2

REPORT INFORMATION
  Report Type: Spontaneous
  Country: US (occurrence: US)
  Receive Date: 20220418
  Receipt Date: 20220418
  Transmission Date: 20220721
  Serious: No
  Sender: FDA-Public Use
  Company Number: US-PFIZER INC-202101275894

PATIENT
  Age: 41 Year
  Sex: Female
  Weight: 60.317 kg

DRUGS (7)
  1. IBRANCE [Suspect]
     Active Substance: PALBOCICLIB
     Indication: Breast cancer
     Dosage: 125 MG, CYCLIC, (DAILY X 21 DAYS THEN 7 DAYS OFF)
     Route: 048
     Dates: start: 20210621
  2. IBRANCE [Suspect]
     Active Substance: PALBOCICLIB
     Dosage: 100 MG, CYCLIC,(DAILY X 21 DAYS THEN 7 DAYS OFF)
     Route: 048
     Dates: start: 20210723, end: 202108
  3. VITAMIN C [Concomitant]
     Active Substance: ASCORBIC ACID
     Dosage: 1000 MG
  4. SERTRALINE HYDROCHLORIDE [Concomitant]
     Active Substance: SERTRALINE HYDROCHLORIDE
     Dosage: 100 %, (100 % POWDER)
  5. CALCIUM [Concomitant]
     Active Substance: CALCIUM
     Dosage: UNK,(500(1250) TAB CHEW)
  6. IRON [Concomitant]
     Active Substance: IRON
     Dosage: UNK, (160(50) MG TABLET SA)
  7. FULVESTRANT [Concomitant]
     Active Substance: FULVESTRANT
     Dosage: UNK, (250 MG/5ML SYRINGE)

REACTIONS (4)
  - White blood cell count decreased [Unknown]
  - Platelet count decreased [Unknown]
  - Full blood count abnormal [Unknown]
  - Condition aggravated [Unknown]
